FAERS Safety Report 23773080 (Version 1)
Quarter: 2024Q2

REPORT INFORMATION
  Report Type: Spontaneous
  Country: CA (occurrence: CA)
  Receive Date: 20240423
  Receipt Date: 20240423
  Transmission Date: 20240717
  Serious: Yes (Other)
  Sender: FDA-Public Use
  Company Number: CA-TEVA-VS-3186577

PATIENT
  Age: 20 Year
  Sex: Female
  Weight: 58 kg

DRUGS (4)
  1. METHOTREXATE SODIUM [Suspect]
     Active Substance: METHOTREXATE SODIUM
     Indication: Crohn^s disease
     Route: 048
  2. METHOTREXATE SODIUM [Suspect]
     Active Substance: METHOTREXATE SODIUM
     Indication: Crohn^s disease
     Route: 048
  3. METHOTREXATE SODIUM [Suspect]
     Active Substance: METHOTREXATE SODIUM
     Indication: Crohn^s disease
     Route: 058
  4. METHOTREXATE SODIUM [Suspect]
     Active Substance: METHOTREXATE SODIUM
     Indication: Crohn^s disease
     Route: 048

REACTIONS (17)
  - Asthenia [Recovering/Resolving]
  - C-reactive protein increased [Recovering/Resolving]
  - Condition aggravated [Recovering/Resolving]
  - Decreased appetite [Recovering/Resolving]
  - Haemoglobin decreased [Recovering/Resolving]
  - Insomnia [Recovering/Resolving]
  - Malaise [Recovering/Resolving]
  - Mean cell volume increased [Recovering/Resolving]
  - Middle insomnia [Recovering/Resolving]
  - Nausea [Recovering/Resolving]
  - Off label use [Recovering/Resolving]
  - Off label use [Recovering/Resolving]
  - Serum ferritin decreased [Recovering/Resolving]
  - Weight fluctuation [Recovering/Resolving]
  - Weight decreased [Recovering/Resolving]
  - Vomiting [Recovering/Resolving]
  - Agitation [Recovering/Resolving]
